FAERS Safety Report 13907487 (Version 1)
Quarter: 2017Q3

REPORT INFORMATION
  Report Type: Spontaneous
  Country: US (occurrence: US)
  Receive Date: 20170825
  Receipt Date: 20170825
  Transmission Date: 20171127
  Serious: No
  Sender: FDA-Public Use
  Company Number: US-ROCHE-1083471

PATIENT
  Age: 15 Year

DRUGS (1)
  1. NUTROPIN AQ [Suspect]
     Active Substance: SOMATROPIN
     Indication: PRODUCT USED FOR UNKNOWN INDICATION
     Dosage: 3.2 ALTER 3.4
     Route: 058
     Dates: start: 20120618

REACTIONS (2)
  - Medication error [Unknown]
  - Burning sensation [Unknown]

NARRATIVE: CASE EVENT DATE: 20120618
